FAERS Safety Report 11471881 (Version 2)
Quarter: 2015Q4

REPORT INFORMATION
  Report Type: Spontaneous
  Country: BR (occurrence: BR)
  Receive Date: 20150908
  Receipt Date: 20151123
  Transmission Date: 20160304
  Serious: Yes (Death, Other)
  Sender: FDA-Public Use
  Company Number: BR-SA-2015SA133874

PATIENT
  Age: 72 Year
  Sex: Female

DRUGS (1)
  1. CEREZYME [Suspect]
     Active Substance: IMIGLUCERASE
     Indication: GAUCHER^S DISEASE
     Route: 042
     Dates: start: 19990801, end: 20150730

REACTIONS (3)
  - Death [Fatal]
  - Leukaemia [Unknown]
  - Lung disorder [Unknown]

NARRATIVE: CASE EVENT DATE: 20150901
